FAERS Safety Report 13357826 (Version 1)
Quarter: 2017Q1

REPORT INFORMATION
  Report Type: Spontaneous
  Country: US (occurrence: US)
  Receive Date: 20170322
  Receipt Date: 20170322
  Transmission Date: 20170429
  Serious: No
  Sender: FDA-Public Use
  Company Number: US-PFIZER INC-2017112795

PATIENT
  Age: 66 Year
  Sex: Male
  Weight: 99.79 kg

DRUGS (3)
  1. PREDNISONE. [Concomitant]
     Active Substance: PREDNISONE
     Indication: ARTHRALGIA
     Dosage: 5 MG, DAILY
     Route: 048
     Dates: start: 1982
  2. NAPROSYN [Concomitant]
     Active Substance: NAPROXEN
     Indication: PAIN
     Dosage: 5 MG, AS NEEDED [5MG PILL BY MOUTH ONE TO TWO TIMES A DAY AS NEEDED]
     Route: 048
     Dates: start: 1982
  3. XELJANZ [Suspect]
     Active Substance: TOFACITINIB CITRATE
     Indication: ARTHRITIS
     Dosage: 5 MG, 2X/DAY (5 MG IN THE MORNING AND AFTERNOON)
     Route: 048
     Dates: start: 2015, end: 201610

REACTIONS (7)
  - Eye pain [Not Recovered/Not Resolved]
  - Dry eye [Not Recovered/Not Resolved]
  - Dyspnoea [Not Recovered/Not Resolved]
  - Photophobia [Not Recovered/Not Resolved]
  - Tinnitus [Recovering/Resolving]
  - Visual impairment [Not Recovered/Not Resolved]
  - Eye allergy [Unknown]

NARRATIVE: CASE EVENT DATE: 2015
